FAERS Safety Report 7693140-5 (Version None)
Quarter: 2011Q3

REPORT INFORMATION
  Report Type: 
  Country: None (occurrence: None)
  Receive Date: 20110819
  Receipt Date: 20110816
  Transmission Date: 20111222
  Serious: Yes (Hospitalization, Disabling, Other)
  Sender: FDA-Public Use
  Company Number: US-PFIZER INC-2011188992

PATIENT
  Sex: Female
  Weight: 63.492 kg

DRUGS (3)
  1. GEODON [Suspect]
     Indication: SCHIZOPHRENIA
     Dosage: 40 MG, 2X/DAY
     Dates: end: 20110101
  2. GEODON [Suspect]
     Dosage: 20 MG, 2X/DAY
     Dates: start: 20110101, end: 20110801
  3. GEODON [Suspect]
     Dosage: 60 MG, 2X/DAY
     Dates: start: 20110801

REACTIONS (4)
  - DEPRESSION [None]
  - ACTIVITIES OF DAILY LIVING IMPAIRED [None]
  - BEDRIDDEN [None]
  - HYPERSOMNIA [None]
